FAERS Safety Report 4708615-8 (Version None)
Quarter: 2005Q3

REPORT INFORMATION
  Report Type: 
  Country: None (occurrence: None)
  Receive Date: 20050707
  Receipt Date: 20050628
  Transmission Date: 20060218
  Serious: Yes (Hospitalization, Other)
  Sender: FDA-Public Use
  Company Number: 200515526US

PATIENT
  Sex: Male

DRUGS (6)
  1. TAXOTERE [Suspect]
     Dosage: DOSE: UNK
     Dates: start: 20050511, end: 20050511
  2. CISPLATIN [Suspect]
     Dosage: DOSE: UNK
     Dates: start: 20050511, end: 20050511
  3. ZOCOR [Concomitant]
     Dosage: DOSE: UNK
  4. ACIPHEX [Concomitant]
     Dosage: DOSE: UNK
  5. SALAGEN [Concomitant]
     Dosage: DOSE: UNK
  6. TIMOPTIC [Concomitant]
     Dosage: DOSE: UNK

REACTIONS (3)
  - ASTHENIA [None]
  - DEHYDRATION [None]
  - WEIGHT DECREASED [None]
